FAERS Safety Report 7490607-X (Version None)
Quarter: 2011Q2

REPORT INFORMATION
  Report Type: 
  Country: None (occurrence: None)
  Receive Date: 20110519
  Receipt Date: 20110509
  Transmission Date: 20111010
  Serious: Yes (Life-Threatening, Hospitalization, Other)
  Sender: FDA-Public Use
  Company Number: NO-BRISTOL-MYERS SQUIBB COMPANY-15750797

PATIENT
  Age: 55 Year
  Sex: Male

DRUGS (8)
  1. ALBYL-E [Concomitant]
  2. METOPROLOL TARTRATE [Concomitant]
     Route: 048
  3. ADALAT [Concomitant]
     Route: 048
  4. METFORMIN HCL [Suspect]
     Indication: DIABETES MELLITUS
     Dosage: 2550MG/DAY,YEARS
     Route: 048
  5. ALLOPURINOL [Concomitant]
  6. IRBESARTAN + HYDROCHLOROTHIAZIDE [Suspect]
     Dosage: 1 DF : 300/12.5MG,KARVEA HCT
     Route: 048
  7. PERSANTIN [Concomitant]
  8. LIPITOR [Concomitant]

REACTIONS (4)
  - LACTIC ACIDOSIS [None]
  - VOMITING [None]
  - RENAL FAILURE ACUTE [None]
  - DIARRHOEA [None]
